FAERS Safety Report 19120807 (Version 2)
Quarter: 2023Q4

REPORT INFORMATION
  Report Type: Spontaneous
  Country: US (occurrence: US)
  Receive Date: 20210412
  Receipt Date: 20231201
  Transmission Date: 20240110
  Serious: Yes (Other)
  Sender: FDA-Public Use
  Company Number: US-SA-SAC20210408001297

PATIENT
  Sex: Female

DRUGS (3)
  1. KEVZARA [Suspect]
     Active Substance: SARILUMAB
     Indication: Rheumatoid arthritis
     Dosage: 200 MG, QOW
     Route: 058
  2. KEVZARA [Suspect]
     Active Substance: SARILUMAB
     Indication: Joint effusion
  3. KEVZARA [Suspect]
     Active Substance: SARILUMAB
     Indication: Arthralgia

REACTIONS (4)
  - Rheumatoid arthritis [Unknown]
  - Joint effusion [Unknown]
  - Rheumatoid nodule [Unknown]
  - Product use in unapproved indication [Unknown]
